FAERS Safety Report 17710447 (Version 1)
Quarter: 2020Q2

REPORT INFORMATION
  Report Type: Spontaneous
  Country: US (occurrence: US)
  Receive Date: 20200427
  Receipt Date: 20200427
  Transmission Date: 20200714
  Serious: No
  Sender: FDA-Public Use
  Company Number: US-009507513-2004USA007505

PATIENT
  Sex: Female
  Weight: 72.57 kg

DRUGS (1)
  1. NEXPLANON [Suspect]
     Active Substance: ETONOGESTREL
     Indication: CONTRACEPTION
     Dosage: IMPLANT-LEFT ARM
     Route: 059
     Dates: start: 20181026

REACTIONS (2)
  - Menstruation irregular [Not Recovered/Not Resolved]
  - Muscle twitching [Not Recovered/Not Resolved]
